FAERS Safety Report 9279092 (Version 2)
Quarter: 2012Q4

REPORT INFORMATION
  Report Type: Spontaneous
  Country: JP (occurrence: None)
  Receive Date: 20120920
  Receipt Date: 20120928
  Transmission Date: 20130627
  Serious: Yes (Other)
  Sender: FDA-Public Use
  Company Number: JP-20120038

PATIENT
  Age: 47 Year
  Sex: Female

DRUGS (1)
  1. HEXABRIX [Suspect]
     Indication: MRI ANGIOGRAPHY
     Dosage: (3 ML, 1 IN 1 D)
     Route: 013
     Dates: start: 20120626, end: 20120626

REACTIONS (3)
  - Anaphylactic shock [None]
  - Product quality issue [None]
  - Pyrexia [None]
